FAERS Safety Report 4493050-0 (Version None)
Quarter: 2004Q4

REPORT INFORMATION
  Report Type: 
  Country: None (occurrence: None)
  Receive Date: 20041101
  Receipt Date: 20041018
  Transmission Date: 20050328
  Serious: Yes (Hospitalization, Other)
  Sender: FDA-Public Use
  Company Number: 209520

PATIENT
  Age: 39 Year
  Sex: Female
  Weight: 93 kg

DRUGS (3)
  1. RITUXAN [Suspect]
     Dosage: 210 MG, SINGLE, INTRAVENOUS
     Route: 042
     Dates: start: 20041005, end: 20041005
  2. VINORELBINE [Concomitant]
  3. ACETAMINOPHEN [Concomitant]

REACTIONS (2)
  - INFUSION RELATED REACTION [None]
  - MEDICATION ERROR [None]
